FAERS Safety Report 21348456 (Version 1)
Quarter: 2022Q3

REPORT INFORMATION
  Report Type: Spontaneous
  Country: US (occurrence: None)
  Receive Date: 20220916
  Receipt Date: 20220916
  Transmission Date: 20221027
  Serious: Yes (Hospitalization)
  Sender: FDA-Public Use
  Company Number: None

PATIENT
  Sex: Male

DRUGS (10)
  1. DALFAMPRIDINE [Suspect]
     Active Substance: DALFAMPRIDINE
  2. ADVAIR DISKU AER [Concomitant]
  3. COLACE CAP [Concomitant]
  4. COUMADIN TAB [Concomitant]
  5. NEURONTIN CAP [Concomitant]
  6. OXYCONTIN TAB [Concomitant]
  7. PERCOCET TAB [Concomitant]
  8. RISPERDAL TAB [Concomitant]
  9. ZONEGRAN CAP [Concomitant]
  10. ZONISAMIDECAP [Concomitant]

REACTIONS (1)
  - Condition aggravated [None]
